FAERS Safety Report 25069545 (Version 1)
Quarter: 2025Q1

REPORT INFORMATION
  Report Type: Spontaneous
  Country: US (occurrence: US)
  Receive Date: 20250312
  Receipt Date: 20250312
  Transmission Date: 20250409
  Serious: No
  Sender: BAYER HEALTHCARE PHARMACEUTICALS INC.
  Company Number: US-BAYER-2025A033076

PATIENT
  Age: 34 Year
  Sex: Female

DRUGS (2)
  1. MIRENA [Suspect]
     Active Substance: LEVONORGESTREL
     Indication: Intrauterine contraception
     Dosage: 20?G/DAY
     Route: 015
     Dates: start: 202408
  2. HYRIMOZ [Concomitant]
     Active Substance: ADALIMUMAB-ADAZ
     Dates: start: 2025

REACTIONS (5)
  - Swelling of eyelid [None]
  - Lip swelling [Recovered/Resolved]
  - Swelling face [None]
  - Peripheral swelling [Not Recovered/Not Resolved]
  - Gluten sensitivity [None]

NARRATIVE: CASE EVENT DATE: 20250101
